FAERS Safety Report 9659653 (Version 2)
Quarter: 2013Q4

REPORT INFORMATION
  Report Type: Report from Study
  Country: US (occurrence: US)
  Receive Date: 20131031
  Receipt Date: 20131031
  Transmission Date: 20140711
  Serious: Yes (Hospitalization)
  Sender: FDA-Public Use
  Company Number: US-JNJFOC-20131001514

PATIENT
  Age: 16 Year
  Sex: Female
  Weight: 46.99 kg

DRUGS (5)
  1. REMICADE [Suspect]
     Indication: CROHN^S DISEASE
     Route: 042
     Dates: start: 20130610
  2. 5-ASA [Concomitant]
     Route: 048
  3. TRI-SPRINTEC [Concomitant]
     Indication: CONTRACEPTION
     Route: 065
  4. PREDNISONE [Concomitant]
     Route: 065
  5. LACTOSE [Concomitant]
     Route: 065

REACTIONS (2)
  - Crohn^s disease [Recovered/Resolved]
  - Cellulitis [Recovered/Resolved]
